FAERS Safety Report 8845922 (Version 2)
Quarter: 2012Q4

REPORT INFORMATION
  Report Type: 
  Country: US (occurrence: US)
  Receive Date: 20121017
  Receipt Date: 20121023
  Transmission Date: 20130627
  Serious: No
  Sender: FDA-Public Use
  Company Number: US-VERTEX PHARMACEUTICAL INC.-2012-022979

PATIENT
  Sex: Male
  Weight: 110 kg

DRUGS (6)
  1. VX-950 [Suspect]
     Indication: HEPATITIS C
     Dosage: 750 mg, tid
     Route: 048
     Dates: start: 201210
  2. RIBASPHERE [Concomitant]
     Indication: HEPATITIS C
     Dosage: 600 mg, bid
     Route: 048
     Dates: start: 201210
  3. PEGASYS [Concomitant]
     Indication: HEPATITIS C
     Dosage: 180 ?g, UNK
     Route: 058
     Dates: start: 201210
  4. HYDROCHLOROTHIAZIDE [Concomitant]
     Dosage: 25 mg, qd
     Route: 048
  5. LISINOPRIL [Concomitant]
     Dosage: 40 mg, qd
     Route: 048
  6. METOPROLOL TARTRATE [Concomitant]
     Dosage: 25 mg, qd
     Route: 048

REACTIONS (3)
  - Diarrhoea [Unknown]
  - Anal pruritus [Unknown]
  - Anorectal discomfort [Unknown]
